FAERS Safety Report 17325214 (Version 5)
Quarter: 2021Q2

REPORT INFORMATION
  Report Type: Spontaneous
  Country: CA (occurrence: CA)
  Receive Date: 20200127
  Receipt Date: 20210525
  Transmission Date: 20210716
  Serious: Yes (Other)
  Sender: FDA-Public Use
  Company Number: CA-PFIZER INC-2018158707

PATIENT
  Age: 48 Year
  Sex: Female

DRUGS (7)
  1. SOMAVERT [Suspect]
     Active Substance: PEGVISOMANT
     Dosage: 10 MG, DAILY
     Route: 058
     Dates: start: 20130410, end: 2015
  2. FLUVOXAMINE [Concomitant]
     Active Substance: FLUVOXAMINE
     Dosage: 10 MG, UNK
     Route: 065
  3. SOMAVERT [Suspect]
     Active Substance: PEGVISOMANT
     Dosage: 15 MG, DAILY
     Route: 058
     Dates: start: 201504, end: 20180729
  4. TRAZODONE [Concomitant]
     Active Substance: TRAZODONE HYDROCHLORIDE
     Dosage: 12.5 MG, DAILY
     Route: 065
  5. SOMAVERT [Suspect]
     Active Substance: PEGVISOMANT
     Dosage: 20 MG, DAILY
     Route: 058
     Dates: end: 201911
  6. SOMAVERT [Suspect]
     Active Substance: PEGVISOMANT
     Dosage: 25 MG, 1X/DAY
     Route: 058
  7. SANDOSTATIN [Concomitant]
     Active Substance: OCTREOTIDE ACETATE
     Indication: ACROMEGALY
     Dosage: 10 MG, CYCLIC (EVERY 4 WEEKS)
     Route: 065
     Dates: end: 201606

REACTIONS (11)
  - Road traffic accident [Unknown]
  - Product physical issue [Unknown]
  - Pain [Unknown]
  - Concussion [Unknown]
  - Product preparation issue [Unknown]
  - Product dose omission issue [Unknown]
  - Product use complaint [Unknown]
  - Therapeutic product effect decreased [Not Recovered/Not Resolved]
  - Excessive cerumen production [Unknown]
  - Hypoacusis [Unknown]
  - Memory impairment [Unknown]

NARRATIVE: CASE EVENT DATE: 201912
